FAERS Safety Report 6704056-2 (Version None)
Quarter: 2010Q2

REPORT INFORMATION
  Report Type: 
  Country: None (occurrence: None)
  Receive Date: 20100430
  Receipt Date: 20100422
  Transmission Date: 20101027
  Serious: Yes (Hospitalization, Other)
  Sender: FDA-Public Use
  Company Number: US-BAYER-201020333NA

PATIENT
  Age: 59 Year
  Sex: Female

DRUGS (2)
  1. AVELOX [Suspect]
     Indication: URINARY TRACT INFECTION
     Dates: start: 20100418, end: 20100418
  2. SYNTHROID [Concomitant]

REACTIONS (2)
  - ANAPHYLACTIC REACTION [None]
  - RASH [None]
